FAERS Safety Report 9153547 (Version 1)
Quarter: 2013Q1

REPORT INFORMATION
  Report Type: Spontaneous
  Country: TR (occurrence: None)
  Receive Date: 20130204
  Receipt Date: 20130204
  Transmission Date: 20140127
  Serious: Yes (Hospitalization, Other)
  Sender: FDA-Public Use
  Company Number: 2012-11124

PATIENT
  Age: 85 Year
  Sex: Male

DRUGS (5)
  1. DONEPEZIL HYDROCHLORIDE [Suspect]
     Indication: DEMENTIA ALZHEIMER^S TYPE
  2. TRANDOLAPRIL [Concomitant]
  3. ACETYLSALICYLIC ACID ALUMINIUM (ACETYLSALICYLIC ACID ALUMINIUM) [Concomitant]
  4. ISOSORBIDE MONONITRATE COX (ISOSORBIDE MONONITRATE) [Concomitant]
  5. TRIMETAZIDINE (PRIMETAZIDINE HYDROCHLORIDE) [Concomitant]

REACTIONS (6)
  - Bradyarrhythmia [None]
  - Sick sinus syndrome [None]
  - Syncope [None]
  - Dizziness [None]
  - Atrioventricular block second degree [None]
  - Sinus arrest [None]
